FAERS Safety Report 26098489 (Version 1)
Quarter: 2025Q4

REPORT INFORMATION
  Report Type: Spontaneous
  Country: EU (occurrence: EU)
  Receive Date: 20251127
  Receipt Date: 20251127
  Transmission Date: 20260117
  Serious: Yes (Hospitalization, Other)
  Sender: MERCK SHARP & DOHME LLC
  Company Number: None

PATIENT
  Age: 59 Year
  Sex: Male
  Weight: 90 kg

DRUGS (46)
  1. DAPTOMYCIN [Suspect]
     Active Substance: DAPTOMYCIN
     Indication: Endocarditis
     Dosage: RECEIVED 8 DAYS AS INPATIENT THEN RECEIVED 9 DAYS ON OUT PATIENT ANTIBIOTIC THERAPY (OPAT)
     Route: 065
     Dates: start: 20251013, end: 20251103
  2. DHEA (G) [Concomitant]
     Route: 065
  3. NEFOPAM (G) [Concomitant]
     Dosage: PRN.
     Route: 065
     Dates: start: 20251003
  4. DICLOFENAC [Concomitant]
     Active Substance: DICLOFENAC
     Route: 065
     Dates: start: 20251011
  5. ENOXAPARIN [Concomitant]
     Active Substance: ENOXAPARIN
     Route: 065
  6. ALLOPURINOL [Concomitant]
     Active Substance: ALLOPURINOL
     Route: 065
  7. DOBUTAMINE 12.5MG/ML STERILE CONCENTRATE. [Concomitant]
     Route: 042
     Dates: start: 20250927
  8. EZETIMIBE [Concomitant]
     Active Substance: EZETIMIBE
     Route: 065
  9. VANCOMYCIN [Concomitant]
     Active Substance: VANCOMYCIN
     Dosage: 1.5G OD, 1G BD, THEN 1.5G BD.
     Route: 065
  10. VANCOMYCIN [Concomitant]
     Active Substance: VANCOMYCIN
     Dosage: 1.5G OD, 1G BD, THEN 1.5G BD.
     Route: 065
  11. VANCOMYCIN [Concomitant]
     Active Substance: VANCOMYCIN
     Dosage: 1.5G OD, 1G BD, THEN 1.5G BD.
     Route: 065
  12. ESOMEPRAZOLE [Concomitant]
     Active Substance: ESOMEPRAZOLE
     Route: 065
     Dates: start: 20250930
  13. COLCHICINE (G) [Concomitant]
     Route: 065
     Dates: start: 20251027
  14. OXYCODONE (G) [Concomitant]
     Dosage: ^10MG, 5MG, 2.5MG PRN^?.
     Route: 065
     Dates: start: 20250929
  15. ROSUVASTATIN [Concomitant]
     Active Substance: ROSUVASTATIN
     Dosage: ^WAS ON HOLD WHILE TAKING OFFENDING MEDICINE^
     Route: 065
  16. OLMESARTAN (GENERIC) (G) [Concomitant]
     Route: 065
  17. HEPARIN (GENERIC) [Concomitant]
     Dosage: 10 UNITS.
     Route: 065
     Dates: start: 20251012
  18. FUROSEMIDE (G) [Concomitant]
     Route: 065
     Dates: start: 20250930
  19. PROPOFOL [Concomitant]
     Active Substance: PROPOFOL
     Route: 065
     Dates: start: 20250926
  20. AMOXICILLIN [Concomitant]
     Active Substance: AMOXICILLIN
     Route: 042
     Dates: start: 20250924
  21. APIXABAN [Concomitant]
     Active Substance: APIXABAN
     Route: 065
     Dates: start: 20251022
  22. PIPERACILLIN SODIUM\TAZOBACTAM SODIUM [Concomitant]
     Active Substance: PIPERACILLIN SODIUM\TAZOBACTAM SODIUM
     Route: 065
     Dates: start: 20251003
  23. ACETAMINOPHEN [Concomitant]
     Active Substance: ACETAMINOPHEN
     Route: 065
  24. POTASSIUM CHLORIDE [Concomitant]
     Active Substance: POTASSIUM CHLORIDE
     Dosage: 1-3 TABS PRN.
     Route: 065
  25. BISOPROLOL (GENERIC) [Concomitant]
     Route: 065
     Dates: start: 20251022
  26. CALCIUM\CHOLECALCIFEROL [Concomitant]
     Active Substance: CALCIUM\CHOLECALCIFEROL
     Dosage: 500MG/400IU.
     Route: 065
     Dates: start: 20251003
  27. Galfer 305 mg Hard Capsules [Concomitant]
     Route: 048
     Dates: start: 20250929
  28. Cimeldine [Concomitant]
     Route: 048
  29. ONDANSETRON [Concomitant]
     Active Substance: ONDANSETRON
     Dosage: PRN.
     Route: 065
     Dates: start: 20250929
  30. ASPIRIN [Concomitant]
     Active Substance: ASPIRIN
     Route: 065
     Dates: start: 20251022
  31. CYCLIZINE [Concomitant]
     Active Substance: CYCLIZINE
     Dosage: PRN.
     Route: 048
     Dates: start: 20250929
  32. ZOLPIDEM [Concomitant]
     Active Substance: ZOLPIDEM TARTRATE
     Route: 065
     Dates: start: 20251022
  33. GABAPENTIN [Concomitant]
     Active Substance: GABAPENTIN
     Route: 065
     Dates: start: 20251022
  34. PANTOPRAZOLE [Concomitant]
     Active Substance: PANTOPRAZOLE
     Route: 065
  35. SENOKOT 7.5MG TABLETS [Concomitant]
     Route: 048
     Dates: start: 20250929
  36. CITALOPRAM (GENERIC) [Concomitant]
     Route: 065
  37. AMIODARONE HYDROCHLORIDE (GENERIC) [Concomitant]
     Dosage: 200MG BD THEN 200MG OD.
     Route: 065
     Dates: start: 20251022
  38. CEFTRIAXONE [Concomitant]
     Active Substance: CEFTRIAXONE
     Route: 065
     Dates: start: 20250924
  39. SALBUTAMOL (G) [Concomitant]
     Route: 065
     Dates: start: 20251003
  40. DUTASTERIDE [Concomitant]
     Active Substance: DUTASTERIDE
     Route: 065
  41. IBUPROFEN [Concomitant]
     Active Substance: IBUPROFEN
     Dosage: 400MG BD/ TDS PRN.
     Route: 065
     Dates: start: 20251017
  42. Exputex 250mg / 5ml Oral Solution [Concomitant]
     Route: 048
     Dates: start: 20250529
  43. CHLORHEXIDINE (G) [Concomitant]
     Route: 065
  44. CEFAZOLIN [Concomitant]
     Active Substance: CEFAZOLIN
     Route: 065
     Dates: start: 20250927
  45. LACTULOSE [Concomitant]
     Active Substance: LACTULOSE
     Route: 065
     Dates: start: 20250928
  46. MAGNESIUM [Concomitant]
     Active Substance: MAGNESIUM
     Dosage: 1 SACHET PRN.
     Route: 065
     Dates: start: 20250929

REACTIONS (1)
  - Pneumonitis [Recovering/Resolving]

NARRATIVE: CASE EVENT DATE: 20251027
